FAERS Safety Report 15627177 (Version 1)
Quarter: 2018Q4

REPORT INFORMATION
  Report Type: Report from Study
  Country: CA (occurrence: CA)
  Receive Date: 20181116
  Receipt Date: 20181116
  Transmission Date: 20190205
  Serious: Yes (Other)
  Sender: FDA-Public Use
  Company Number: CA-JNJFOC-20181111076

PATIENT
  Sex: Female

DRUGS (1)
  1. REMICADE [Suspect]
     Active Substance: INFLIXIMAB
     Indication: CROHN^S DISEASE
     Route: 042

REACTIONS (6)
  - Abdominal pain [Unknown]
  - Weight increased [Unknown]
  - Haematochezia [Unknown]
  - Drug effect decreased [Unknown]
  - General physical health deterioration [Unknown]
  - Frequent bowel movements [Unknown]
